FAERS Safety Report 20110883 (Version 1)
Quarter: 2021Q4

REPORT INFORMATION
  Report Type: Spontaneous
  Country: CN (occurrence: None)
  Receive Date: 20211124
  Receipt Date: 20211124
  Transmission Date: 20220303
  Serious: Yes (Other)
  Sender: FDA-Public Use
  Company Number: CN-ROCHE-2964116

PATIENT
  Age: 65 Year
  Sex: Male

DRUGS (14)
  1. XELODA [Suspect]
     Active Substance: CAPECITABINE
     Indication: Colon cancer
     Dosage: ON DAY 1-14
     Route: 065
     Dates: start: 20210410
  2. AVASTIN [Suspect]
     Active Substance: BEVACIZUMAB
     Indication: Colon cancer
     Dosage: BEVACIZUMAB + FOLIRL FOR 4 CYCLES, ON DAY 1
     Route: 041
     Dates: start: 20200625
  3. AVASTIN [Suspect]
     Active Substance: BEVACIZUMAB
     Dosage: BEVACIZUMAB + FOLIRL FOR 3 CYCLES
     Route: 041
     Dates: start: 202102, end: 202103
  4. AVASTIN [Suspect]
     Active Substance: BEVACIZUMAB
     Dosage: ON DAY 1
     Route: 041
     Dates: start: 20210410, end: 20210805
  5. AVASTIN [Suspect]
     Active Substance: BEVACIZUMAB
     Dosage: ON DAY 1
     Route: 041
     Dates: start: 20211102
  6. OXALIPLATIN [Concomitant]
     Active Substance: OXALIPLATIN
     Indication: Colon cancer
     Dosage: ON DAY 1
     Route: 041
     Dates: start: 20211102
  7. IRINOTECAN [Concomitant]
     Active Substance: IRINOTECAN
     Indication: Colon cancer
     Dosage: BEVACIZUMAB + FOLIRL FOR 4 CYCLES, ON DAY 1
     Route: 041
     Dates: start: 20200625
  8. IRINOTECAN [Concomitant]
     Active Substance: IRINOTECAN
     Dosage: BEVACIZUMAB + FOLIRL FOR 3 CYCLES
     Dates: start: 202102, end: 202103
  9. LEVOLEUCOVORIN CALCIUM [Concomitant]
     Active Substance: LEVOLEUCOVORIN CALCIUM
     Indication: Colon cancer
     Dosage: BEVACIZUMAB + FOLIRL FOR 4 CYCLES, ON DAY 1
     Route: 041
     Dates: start: 20200625
  10. LEVOLEUCOVORIN CALCIUM [Concomitant]
     Active Substance: LEVOLEUCOVORIN CALCIUM
     Dosage: BEVACIZUMAB + FOLIRL FOR 3 CYCLES
     Dates: start: 202102, end: 202103
  11. FLUOROURACIL [Concomitant]
     Active Substance: FLUOROURACIL
     Indication: Colon cancer
     Dosage: BEVACIZUMAB + FOLIRL FOR 4 CYCLES
     Route: 042
     Dates: start: 20200625
  12. FLUOROURACIL [Concomitant]
     Active Substance: FLUOROURACIL
     Dosage: BEVACIZUMAB + FOLIRL FOR 3 CYCLES
     Dates: start: 202102, end: 202103
  13. RALTITREXED [Concomitant]
     Active Substance: RALTITREXED
     Indication: Colon cancer
     Dosage: ON DAY 1
     Route: 041
     Dates: start: 20211102
  14. MANNITOL [Concomitant]
     Active Substance: MANNITOL
     Dates: start: 20200624

REACTIONS (2)
  - Myelosuppression [Unknown]
  - Palmar-plantar erythrodysaesthesia syndrome [Unknown]
